FAERS Safety Report 4495074-6 (Version None)
Quarter: 2004Q4

REPORT INFORMATION
  Report Type: 
  Country: None (occurrence: None)
  Receive Date: 20041108
  Receipt Date: 20041026
  Transmission Date: 20050328
  Serious: Yes (Hospitalization)
  Sender: FDA-Public Use
  Company Number: US-ABBOTT-04P-163-0278681-00

PATIENT
  Sex: Female
  Weight: 87.395 kg

DRUGS (2)
  1. SYNTHROID [Suspect]
     Indication: HYPOTHYROIDISM
     Route: 048
     Dates: start: 19870101, end: 20041011
  2. SYNTHROID [Suspect]
     Route: 048
     Dates: start: 20041026

REACTIONS (7)
  - ASTHENIA [None]
  - DEHYDRATION [None]
  - FEELING ABNORMAL [None]
  - FOOD POISONING [None]
  - NAUSEA [None]
  - VOMITING [None]
  - WEIGHT INCREASED [None]
